FAERS Safety Report 6371247-2 (Version None)
Quarter: 2009Q3

REPORT INFORMATION
  Report Type: 
  Country: None (occurrence: None)
  Receive Date: 20090923
  Receipt Date: 20070402
  Transmission Date: 20100115
  Serious: No
  Sender: FDA-Public Use
  Company Number: US-ASTRAZENECA-2007UW01409

PATIENT
  Age: 11818 Day
  Sex: Female
  Weight: 109.8 kg

DRUGS (17)
  1. SEROQUEL [Suspect]
     Indication: DEPRESSION
     Route: 048
     Dates: start: 20020208
  2. SEROQUEL [Suspect]
     Indication: ANXIETY
     Route: 048
     Dates: start: 20020208
  3. SEROQUEL [Suspect]
     Indication: SLEEP DISORDER
     Route: 048
     Dates: start: 20020208
  4. CLONAZEPAM [Concomitant]
     Dosage: 0.5-1.0 MG
     Route: 065
     Dates: start: 19990712, end: 20051107
  5. ETODOLAC [Concomitant]
     Route: 065
  6. ZOCOR [Concomitant]
     Route: 065
  7. IMIPRAMINE [Concomitant]
     Route: 065
  8. HYDROCODONE [Concomitant]
     Route: 065
  9. OXYCODONE [Concomitant]
     Route: 065
  10. PAXIL [Concomitant]
     Dosage: 20-30 MG
     Route: 065
  11. IBUPROFEN [Concomitant]
     Dosage: 200-800 MG
     Route: 065
  12. ACETAMINOPHEN [Concomitant]
     Route: 065
  13. HYDROCHLOROTHIAZIDE [Concomitant]
     Route: 065
  14. NITROFURANTOIN [Concomitant]
     Route: 065
  15. AVANDIA [Concomitant]
     Route: 065
  16. METFORMIN HCL [Concomitant]
     Route: 065
  17. BUMETANIDE [Concomitant]
     Route: 065

REACTIONS (6)
  - DIABETES MELLITUS [None]
  - JOINT SPRAIN [None]
  - SINUSITIS [None]
  - TYPE 2 DIABETES MELLITUS [None]
  - WEIGHT INCREASED [None]
  - WOUND [None]
